FAERS Safety Report 8367973-6 (Version None)
Quarter: 2012Q2

REPORT INFORMATION
  Report Type: 
  Country: None (occurrence: None)
  Receive Date: 20120516
  Receipt Date: 20120504
  Transmission Date: 20120825
  Serious: Yes (Hospitalization)
  Sender: FDA-Public Use
  Company Number: 2012AP001200

PATIENT
  Age: 74 Year
  Sex: Female

DRUGS (4)
  1. CLARITHROMYCIN [Suspect]
     Indication: HELICOBACTER INFECTION
  2. SIMVASTATIN [Suspect]
     Indication: PRODUCT USED FOR UNKNOWN INDICATION
  3. AMOXICILLIN [Concomitant]
  4. OMEPRAZOLE [Concomitant]

REACTIONS (4)
  - FALL [None]
  - RHABDOMYOLYSIS [None]
  - DRUG INTERACTION [None]
  - ABASIA [None]
